FAERS Safety Report 9056106 (Version 1)
Quarter: 2013Q1

REPORT INFORMATION
  Report Type: Spontaneous
  Country: CH (occurrence: CH)
  Receive Date: 20130205
  Receipt Date: 20130205
  Transmission Date: 20140127
  Serious: Yes (Death, Other)
  Sender: FDA-Public Use
  Company Number: CH-ROXANE LABORATORIES, INC.-2013-RO-00186RO

PATIENT
  Age: 68 Year
  Sex: Male

DRUGS (7)
  1. MYCOPHENOLATE MOFETIL [Suspect]
     Indication: IMMUNOSUPPRESSANT DRUG THERAPY
  2. STEROIDS [Suspect]
     Indication: IMMUNOSUPPRESSANT DRUG THERAPY
  3. CYCLOSPORINE [Suspect]
     Indication: IMMUNOSUPPRESSANT DRUG THERAPY
  4. VORICONAZOLE [Suspect]
     Indication: BRONCHOPULMONARY ASPERGILLOSIS
  5. CASPOFUNGIN [Suspect]
     Indication: BRONCHOPULMONARY ASPERGILLOSIS
  6. AMPHOTERICIN B [Suspect]
     Indication: BRONCHOPULMONARY ASPERGILLOSIS
  7. ITRACONAZOLE [Suspect]
     Indication: BRONCHOPULMONARY ASPERGILLOSIS
     Route: 042

REACTIONS (5)
  - Bronchopulmonary aspergillosis [Fatal]
  - Renal failure acute [Unknown]
  - Pneumonia [Unknown]
  - Pseudomonal bacteraemia [Unknown]
  - Hallucination [Unknown]
